FAERS Safety Report 10794215 (Version 1)
Quarter: 2015Q1

REPORT INFORMATION
  Report Type: Spontaneous
  Country: CN (occurrence: CN)
  Receive Date: 20150213
  Receipt Date: 20150213
  Transmission Date: 20150721
  Serious: Yes (Other)
  Sender: FDA-Public Use
  Company Number: CN-BAYER-2015-019739

PATIENT
  Age: 50 Year
  Sex: Female
  Weight: 75 kg

DRUGS (2)
  1. ULTRAVIST [Suspect]
     Active Substance: IOPROMIDE
     Indication: IMAGING PROCEDURE
     Dosage: 80 ML, ONCE
     Route: 042
     Dates: start: 20140811, end: 20140811
  2. ULTRAVIST [Suspect]
     Active Substance: IOPROMIDE
     Indication: COMPUTERISED TOMOGRAM

REACTIONS (3)
  - Pruritus [Recovering/Resolving]
  - Rash maculo-papular [Recovering/Resolving]
  - Dysphonia [Recovering/Resolving]

NARRATIVE: CASE EVENT DATE: 20140811
